FAERS Safety Report 19099478 (Version 2)
Quarter: 2021Q2

REPORT INFORMATION
  Report Type: Spontaneous
  Country: IQ (occurrence: IQ)
  Receive Date: 20210407
  Receipt Date: 20210426
  Transmission Date: 20210717
  Serious: Yes (Other)
  Sender: FDA-Public Use
  Company Number: IQ-CELLTRION INC.-2021IQ004568

PATIENT

DRUGS (4)
  1. AZATHIOPRINE. [Concomitant]
     Active Substance: AZATHIOPRINE
     Indication: BEHCET^S SYNDROME
     Dosage: UNKNOWN
     Route: 065
  2. PREDNISOLONE. [Concomitant]
     Active Substance: PREDNISOLONE
     Indication: BEHCET^S SYNDROME
     Dosage: UNKNOWN
     Route: 065
  3. REMSIMA [Suspect]
     Active Substance: INFLIXIMAB
     Indication: BEHCET^S SYNDROME
     Dosage: 0.0893 MG/KG (5 MG/KG,1 IN 8 WK)
     Route: 042
  4. REMSIMA [Suspect]
     Active Substance: INFLIXIMAB
     Dosage: 0.1786 MG/KG (5 MG/KG,1 IN 4 WK)
     Route: 042

REACTIONS (4)
  - Off label use [Unknown]
  - Behcet^s syndrome [Unknown]
  - Remission not achieved [Unknown]
  - Condition aggravated [Unknown]
